FAERS Safety Report 9295062 (Version 1)
Quarter: 2013Q1

REPORT INFORMATION
  Report Type: Spontaneous
  Country: US (occurrence: None)
  Receive Date: 20121227
  Receipt Date: 20121227
  Transmission Date: 20140127
  Serious: No
  Sender: FDA-Public Use
  Company Number: PHEH2012US021747

PATIENT
  Sex: Female
  Weight: 70.7 kg

DRUGS (11)
  1. AFINITOR [Suspect]
  2. GILENYA [Suspect]
     Dates: start: 20111214
  3. GABAPENTIN (GABAPENTIN) [Concomitant]
  4. PRAVASTATIN (PRAVASTATIN) [Concomitant]
  5. PRILOSEC [Concomitant]
  6. RANITIDINE (RANITIDINE) [Concomitant]
  7. PLAVIX (CLOPIDOGREL BISULFATE) [Concomitant]
  8. METOPROLOL (METOPROLOL) [Concomitant]
  9. OXYBUTYNIN (OXYBUTYNIN) [Concomitant]
  10. BIOTIN (BIOTIN) [Concomitant]
  11. LEVOTHYROXIN (LEVOTHYROXINE SODIUM) [Concomitant]

REACTIONS (3)
  - Cough [None]
  - Rash [None]
  - Pyrexia [None]
